FAERS Safety Report 5951881-1 (Version None)
Quarter: 2008Q4

REPORT INFORMATION
  Report Type: 
  Country: None (occurrence: None)
  Receive Date: 20081113
  Receipt Date: 20081111
  Transmission Date: 20090506
  Serious: Yes (Death, Hospitalization)
  Sender: FDA-Public Use
  Company Number: FR-BRISTOL-MYERS SQUIBB COMPANY-14403034

PATIENT
  Age: 62 Year
  Sex: Male

DRUGS (4)
  1. CETUXIMAB [Suspect]
     Indication: COLORECTAL CANCER METASTATIC
     Dosage: THERAPY STARTED ON 02-APR-2008, STOPPED 03-JUN-2008 (CYCLE 5).
     Dates: start: 20080402
  2. FOLINIC ACID [Suspect]
     Indication: COLORECTAL CANCER METASTATIC
     Dosage: THERAPY STARTED ON 02-APR-2008, REDUCED AFTER CYCLE 2 + STOPPED 03-JUN-2008 (CYCLE 5).
     Dates: start: 20080402
  3. IRINOTECAN HCL [Suspect]
     Indication: COLORECTAL CANCER METASTATIC
     Dosage: THERAPY STARTED ON 02-APR-2008, REDUCED AFTER CYCLE 2 + STOPPED 03-JUN-2008 (CYCLE 5).
     Dates: start: 20080402
  4. FLUOROURACIL [Suspect]
     Indication: COLORECTAL CANCER METASTATIC
     Dosage: THERAPY STARTED ON 02-APR-2008, REDUCED AFTER CYCLE 2 + STOPPED 03-JUN-2008 (CYCLE 5).
     Dates: start: 20080402

REACTIONS (5)
  - COLORECTAL CANCER METASTATIC [None]
  - DIARRHOEA [None]
  - HAEMOGLOBIN DECREASED [None]
  - MALIGNANT NEOPLASM PROGRESSION [None]
  - STOMATITIS [None]
